FAERS Safety Report 4766657-0 (Version None)
Quarter: 2005Q3

REPORT INFORMATION
  Report Type: 
  Country: None (occurrence: None)
  Receive Date: 20050912
  Receipt Date: 20050824
  Transmission Date: 20060218
  Serious: Yes (Hospitalization)
  Sender: FDA-Public Use
  Company Number: 2005BI014200

PATIENT
  Age: 51 Year
  Sex: Female

DRUGS (6)
  1. AVONEX [Suspect]
     Indication: MULTIPLE SCLEROSIS
     Dosage: 30 UG; QW; IM
     Route: 030
     Dates: start: 20050615
  2. AVONEX [Suspect]
     Indication: MULTIPLE SCLEROSIS
     Dosage: 7.5 UG; QW; IM
     Route: 030
     Dates: start: 20050802
  3. ZOLOFT [Concomitant]
  4. BACLOFEN [Concomitant]
  5. PROVIGIL [Concomitant]
  6. MULTI-VITAMIN [Concomitant]

REACTIONS (2)
  - FALL [None]
  - IMMOBILE [None]
